APPROVED DRUG PRODUCT: ENTECAVIR
Active Ingredient: ENTECAVIR
Strength: 1MG
Dosage Form/Route: TABLET;ORAL
Application: A202122 | Product #002
Applicant: TEVA PHARMACEUTICALS USA
Approved: Aug 26, 2014 | RLD: No | RS: No | Type: DISCN